FAERS Safety Report 7525216-7 (Version None)
Quarter: 2011Q2

REPORT INFORMATION
  Report Type: 
  Country: None (occurrence: None)
  Receive Date: 20110526
  Receipt Date: 20110502
  Transmission Date: 20111010
  Serious: Yes (Life-Threatening, Other)
  Sender: FDA-Public Use
  Company Number: JP-2011-1020

PATIENT
  Age: 61 Year
  Sex: Male

DRUGS (2)
  1. NAVELBINE [Suspect]
     Indication: NON-SMALL CELL LUNG CANCER
     Dosage: 20 MG/M2, IV
     Route: 042
     Dates: start: 20110414
  2. TARCEVA [Concomitant]

REACTIONS (2)
  - PLEURAL EFFUSION [None]
  - HYPERSENSITIVITY [None]
